FAERS Safety Report 24969395 (Version 1)
Quarter: 2025Q1

REPORT INFORMATION
  Report Type: Spontaneous
  Country: US (occurrence: None)
  Receive Date: 20250213
  Receipt Date: 20250213
  Transmission Date: 20250409
  Serious: Yes (Other)
  Sender: FDA-CTU
  Company Number: None

PATIENT
  Age: 58 Year
  Sex: Male

DRUGS (19)
  1. AMBRISENTAN [Suspect]
     Active Substance: AMBRISENTAN
     Indication: Pulmonary hypertension
     Dosage: FREQUENCY : DAILY;?
     Route: 048
     Dates: start: 20240723, end: 20240923
  2. TADALAFIL [Concomitant]
     Active Substance: TADALAFIL
  3. CALCITRIOL [Concomitant]
     Active Substance: CALCITRIOL
  4. CITALOPRAM [Concomitant]
     Active Substance: CITALOPRAM
  5. JAKAFI [Concomitant]
     Active Substance: RUXOLITINIB
  6. ALLOPURINOL [Concomitant]
     Active Substance: ALLOPURINOL
  7. ATORVASTATIN [Concomitant]
     Active Substance: ATORVASTATIN
  8. ATENOLOL [Concomitant]
     Active Substance: ATENOLOL
  9. RENVELA [Concomitant]
     Active Substance: SEVELAMER CARBONATE
  10. ASPIRIN [Concomitant]
     Active Substance: ASPIRIN
  11. ENOXAPARIN [Concomitant]
     Active Substance: ENOXAPARIN
  12. LISINOPRIL [Concomitant]
     Active Substance: LISINOPRIL
  13. LODELMA [Concomitant]
  14. JARDIANCE [Concomitant]
     Active Substance: EMPAGLIFLOZIN
  15. BUMETANIDE [Concomitant]
     Active Substance: BUMETANIDE
  16. OXYGEN INTRANSAL [Concomitant]
  17. FISH [Concomitant]
     Active Substance: FISH
  18. OIL [Concomitant]
     Active Substance: MINERAL OIL
  19. MVI with minerals [Concomitant]

REACTIONS (4)
  - Abdominal distension [None]
  - Oedema [None]
  - Dyspnoea [None]
  - Therapy cessation [None]

NARRATIVE: CASE EVENT DATE: 20240923
